FAERS Safety Report 4751499-2 (Version None)
Quarter: 2005Q3

REPORT INFORMATION
  Report Type: 
  Country: None (occurrence: None)
  Receive Date: 20050823
  Receipt Date: 20050823
  Transmission Date: 20060218
  Serious: Yes (Hospitalization)
  Sender: FDA-Public Use
  Company Number: None

PATIENT
  Age: 75 Year
  Sex: Male
  Weight: 84.8226 kg

DRUGS (1)
  1. GATIFLOXACIN [Suspect]
     Indication: URINARY TRACT INFECTION
     Dosage: 200MG ORAL FOR 9 DAYS
     Route: 048
     Dates: start: 20050428, end: 20050502

REACTIONS (1)
  - BLOOD GLUCOSE INCREASED [None]
